FAERS Safety Report 5268927-9 (Version None)
Quarter: 2007Q1

REPORT INFORMATION
  Report Type: 
  Country: None (occurrence: None)
  Receive Date: 20070313
  Receipt Date: 20070227
  Transmission Date: 20070707
  Serious: Yes (Death, Hospitalization)
  Sender: FDA-Public Use
  Company Number: 2007030010

PATIENT
  Age: 63 Year
  Sex: Female

DRUGS (2)
  1. D-PENICILLAMINE [Suspect]
     Indication: SYSTEMIC SCLEROSIS
     Dosage: 100 MG/DAY
  2. PREDNISOLONE [Concomitant]

REACTIONS (16)
  - CARDIAC TAMPONADE [None]
  - DYSPHAGIA [None]
  - HAEMODIALYSIS [None]
  - INTERSTITIAL LUNG DISEASE [None]
  - MALAISE [None]
  - PERICARDIAL EFFUSION [None]
  - PERICARDITIS [None]
  - PLEURAL EFFUSION [None]
  - POLYARTHRITIS [None]
  - PULMONARY ALVEOLAR HAEMORRHAGE [None]
  - PULMONARY OEDEMA [None]
  - RESPIRATORY FAILURE [None]
  - SCLERODERMA RENAL CRISIS [None]
  - SKIN OEDEMA [None]
  - THROMBOTIC MICROANGIOPATHY [None]
  - ULCER [None]
